FAERS Safety Report 9955140 (Version 2)
Quarter: 2014Q2

REPORT INFORMATION
  Report Type: Spontaneous
  Country: FR (occurrence: FR)
  Receive Date: 20140304
  Receipt Date: 20140408
  Transmission Date: 20141212
  Serious: Yes (Death, Life-Threatening, Other)
  Sender: FDA-Public Use
  Company Number: FR-BAXTER-2014BAX009255

PATIENT
  Age: 64 Year
  Sex: Male

DRUGS (5)
  1. FEIBA 500 U/20 ML, POUDRE ET SOLVANT POUR SOLUTION INJECTABLE [Suspect]
     Indication: FACTOR VIII DEFICIENCY
     Route: 042
     Dates: end: 20140128
  2. ESIDREX [Concomitant]
     Indication: PRODUCT USED FOR UNKNOWN INDICATION
     Route: 065
     Dates: start: 20140121
  3. ACTISKENAN [Concomitant]
     Indication: PRODUCT USED FOR UNKNOWN INDICATION
     Route: 065
     Dates: start: 20140121
  4. BACTRIM FORTE [Concomitant]
     Indication: PRODUCT USED FOR UNKNOWN INDICATION
     Route: 065
     Dates: start: 20140121
  5. VOLTARENE [Concomitant]
     Indication: PRODUCT USED FOR UNKNOWN INDICATION
     Route: 065
     Dates: start: 20140121

REACTIONS (4)
  - Cerebrovascular accident [Fatal]
  - Myocardial infarction [Recovered/Resolved with Sequelae]
  - Anaemia [Recovered/Resolved]
  - Mitral valve incompetence [Unknown]
